FAERS Safety Report 17170545 (Version 1)
Quarter: 2019Q4

REPORT INFORMATION
  Report Type: Report from Study
  Country: US (occurrence: US)
  Receive Date: 20191218
  Receipt Date: 20191218
  Transmission Date: 20200122
  Serious: Yes (Other)
  Sender: FDA-Public Use
  Company Number: US-BAYER-2019-229885

PATIENT
  Age: 29 Year
  Sex: Male

DRUGS (1)
  1. STIVARGA [Suspect]
     Active Substance: REGORAFENIB
     Indication: RECTAL CANCER
     Dosage: 160 MG DAILY FOR THE FIRST 21 DAYS OF EACH 28 DAY CYCLE
     Route: 048
     Dates: start: 20191203, end: 20191211

REACTIONS (1)
  - Blood count abnormal [Unknown]
